FAERS Safety Report 8075982-X (Version None)
Quarter: 2012Q1

REPORT INFORMATION
  Report Type: 
  Country: None (occurrence: None)
  Receive Date: 20120127
  Receipt Date: 20110131
  Transmission Date: 20120608
  Serious: No
  Sender: FDA-Public Use
  Company Number: US-GLAXOSMITHKLINE-A0910693A

PATIENT
  Age: 35 Year
  Sex: Male

DRUGS (5)
  1. HYDROXYZINE [Concomitant]
  2. ADVAIR DISKUS 100/50 [Concomitant]
  3. LITHIUM CARBONATE [Concomitant]
  4. WELLBUTRIN [Suspect]
     Indication: DEPRESSION
     Dosage: 100MG PER DAY
     Route: 048
     Dates: start: 20101101, end: 20101201
  5. BUSPAR [Concomitant]

REACTIONS (1)
  - MIGRAINE [None]
